FAERS Safety Report 12014921 (Version 1)
Quarter: 2016Q1

REPORT INFORMATION
  Report Type: Other
  Country: US (occurrence: US)
  Receive Date: 20160205
  Receipt Date: 20160205
  Transmission Date: 20160526
  Serious: Yes (Other)
  Sender: FDA-Public Use
  Company Number: US-WARNER CHILCOTT, LLC-1047396

PATIENT
  Age: 2 Month
  Sex: Male

DRUGS (4)
  1. LISINOPRIL. [Concomitant]
     Active Substance: LISINOPRIL
  2. DIDRONEL [Suspect]
     Active Substance: ETIDRONATE DISODIUM
     Indication: VASCULAR CALCIFICATION
     Route: 048
  3. AMLODIPINE BESILATE [Concomitant]
     Active Substance: AMLODIPINE BESYLATE
  4. VALSARTAN. [Concomitant]
     Active Substance: VALSARTAN

REACTIONS (4)
  - Knee deformity [None]
  - Arteriosclerosis coronary artery [None]
  - Hypophosphataemic rickets [Unknown]
  - Knee deformity [Unknown]
